FAERS Safety Report 7561541-1 (Version None)
Quarter: 2011Q2

REPORT INFORMATION
  Report Type: 
  Country: None (occurrence: None)
  Receive Date: 20110621
  Receipt Date: 20100625
  Transmission Date: 20111010
  Serious: No
  Sender: FDA-Public Use
  Company Number: US-ASTRAZENECA-2010SE29934

PATIENT
  Age: 5 Year
  Sex: Male
  Weight: 14.1 kg

DRUGS (2)
  1. PULMICORT FLEXHALER [Suspect]
     Indication: ASTHMA
     Route: 055
     Dates: start: 20100624, end: 20100624
  2. ALBUTEROL SULFATE AUTOHALER [Concomitant]

REACTIONS (3)
  - ASTHMA [None]
  - URTICARIA [None]
  - ERYTHEMA [None]
